FAERS Safety Report 14762673 (Version 2)
Quarter: 2018Q2

REPORT INFORMATION
  Report Type: Spontaneous
  Country: US (occurrence: US)
  Receive Date: 20180416
  Receipt Date: 20180420
  Transmission Date: 20180711
  Serious: No
  Sender: FDA-Public Use
  Company Number: US-PFIZER INC-2018152119

PATIENT
  Sex: Male
  Weight: 64.99 kg

DRUGS (1)
  1. EFFEXOR XR [Suspect]
     Active Substance: VENLAFAXINE HYDROCHLORIDE
     Indication: PANIC ATTACK
     Dosage: 37.5 MG, 1X/DAY
     Route: 048
     Dates: start: 2015, end: 20180407

REACTIONS (7)
  - Insomnia [Unknown]
  - Nightmare [Unknown]
  - Withdrawal syndrome [Unknown]
  - Paraesthesia [Recovering/Resolving]
  - Intentional product misuse [Unknown]
  - Condition aggravated [Unknown]
  - Abdominal discomfort [Unknown]

NARRATIVE: CASE EVENT DATE: 20180409
